FAERS Safety Report 4497605-9 (Version None)
Quarter: 2004Q4

REPORT INFORMATION
  Report Type: 
  Country: None (occurrence: None)
  Receive Date: 20041105
  Receipt Date: 20041019
  Transmission Date: 20050328
  Serious: Yes (Death)
  Sender: FDA-Public Use
  Company Number: NL-JNJFOC-20040907839

PATIENT
  Sex: Female
  Weight: 47.8 kg

DRUGS (7)
  1. RISPERDAL [Suspect]
  2. RISPERDAL [Suspect]
  3. RISPERDAL [Suspect]
  4. CITALOPRAM [Concomitant]
     Dosage: TAPERED
  5. NAPROXEN [Concomitant]
  6. NAPROXEN [Concomitant]
  7. ACETAMINOPHEN [Concomitant]
     Dosage: 7 TABLETS

REACTIONS (11)
  - CEREBRAL ISCHAEMIA [None]
  - EPILEPSY [None]
  - FATIGUE [None]
  - FOAMING AT MOUTH [None]
  - INCREASED BRONCHIAL SECRETION [None]
  - MENSTRUAL DISORDER [None]
  - MULTI-ORGAN DISORDER [None]
  - NERVOUS SYSTEM DISORDER [None]
  - OVERGROWTH BACTERIAL [None]
  - PANCREATIC DISORDER [None]
  - WEIGHT INCREASED [None]
